FAERS Safety Report 9632503 (Version 1)
Quarter: 2013Q4

REPORT INFORMATION
  Report Type: Spontaneous
  Country: GB (occurrence: GB)
  Receive Date: 20131018
  Receipt Date: 20131018
  Transmission Date: 20140711
  Serious: Yes (Other)
  Sender: FDA-Public Use
  Company Number: GB-BRISTOL-MYERS SQUIBB COMPANY-19513928

PATIENT
  Sex: Female

DRUGS (6)
  1. ATAZANAVIR [Suspect]
     Indication: HEPATITIS C
     Dosage: DOSAGE FORM: UNSPECIFIED
  2. TELAPREVIR [Suspect]
     Indication: HEPATITIS C
     Route: 048
  3. RIBAVIRIN [Suspect]
     Indication: PRODUCT USED FOR UNKNOWN INDICATION
     Dosage: DOSAGE FORM: UNSPECIFIED
  4. INTERFERON [Suspect]
     Indication: HEPATITIS C
     Dosage: DOSAGE FORM: UNSPECIFIED
  5. ABACAVIR [Suspect]
     Indication: HEPATITIS C
     Dosage: DOSAGE FORM: UNSPECIFIED
  6. RALTEGRAVIR [Suspect]
     Indication: PRODUCT USED FOR UNKNOWN INDICATION
     Dosage: DOSAGE FORM: UNSPECIFIED

REACTIONS (5)
  - Haemoglobin decreased [Unknown]
  - Weight decreased [Unknown]
  - Feeling cold [Unknown]
  - Decreased appetite [Unknown]
  - Fatigue [Unknown]
